FAERS Safety Report 8484498-8 (Version None)
Quarter: 2012Q3

REPORT INFORMATION
  Report Type: 
  Country: None (occurrence: None)
  Receive Date: 20120703
  Receipt Date: 20120701
  Transmission Date: 20120928
  Serious: Yes (Other)
  Sender: FDA-Public Use
  Company Number: US-PFIZER INC-2012157709

PATIENT
  Age: 55 Year
  Sex: Male

DRUGS (1)
  1. CHANTIX [Suspect]
     Indication: SMOKING CESSATION THERAPY
     Dosage: UNK
     Route: 048
     Dates: start: 20120601

REACTIONS (3)
  - MOVEMENT DISORDER [None]
  - MULTIPLE SCLEROSIS [None]
  - GAIT DISTURBANCE [None]
